FAERS Safety Report 19916301 (Version 1)
Quarter: 2021Q4

REPORT INFORMATION
  Report Type: Spontaneous
  Country: US (occurrence: US)
  Receive Date: 20211004
  Receipt Date: 20211004
  Transmission Date: 20220303
  Serious: Yes (Life-Threatening, Hospitalization, Disabling, Other)
  Sender: FDA-Public Use
  Company Number: None

PATIENT

DRUGS (2)
  1. MULTRYS [Suspect]
     Active Substance: CUPRIC SULFATE\MANGANESE SULFATE\SELENIOUS ACID\ZINC SULFATE
  2. TRALEMENT [Suspect]
     Active Substance: CUPRIC SULFATE\MAGNESIUM SULFATE MONOHYDRATE\SELENIOUS ACID\ZINC SULFATE HEPTAHYDRATE

REACTIONS (1)
  - Physical product label issue [None]
